FAERS Safety Report 4684554-6 (Version None)
Quarter: 2005Q2

REPORT INFORMATION
  Report Type: 
  Country: None (occurrence: None)
  Receive Date: 20050603
  Receipt Date: 20050525
  Transmission Date: 20051028
  Serious: Yes (Hospitalization)
  Sender: FDA-Public Use
  Company Number: TPA2005A00611

PATIENT
  Age: 73 Year
  Sex: Male

DRUGS (5)
  1. ACTOS [Suspect]
     Indication: DIABETES MELLITUS
     Dosage: PER ORAL
     Route: 048
     Dates: end: 20030101
  2. HUMALOG [Concomitant]
  3. HUMALOG MIX 75/25 (INSULIN LISPRO) (25 IU (INTERNATIONAL UNIT)) [Concomitant]
  4. HUMULIN N [Concomitant]
  5. ATIVAN [Concomitant]

REACTIONS (4)
  - FLUID RETENTION [None]
  - OEDEMA PERIPHERAL [None]
  - QUADRUPLE VESSEL BYPASS GRAFT [None]
  - SWELLING [None]
